FAERS Safety Report 15723527 (Version 1)
Quarter: 2018Q4

REPORT INFORMATION
  Report Type: Spontaneous
  Country: US (occurrence: US)
  Receive Date: 20181214
  Receipt Date: 20181214
  Transmission Date: 20190205
  Serious: No
  Sender: FDA-Public Use
  Company Number: US-SA-2018SA335959

PATIENT
  Age: 66 Year
  Sex: Female

DRUGS (1)
  1. GOLD BOND MEDICATED CRACKED SKIN FILL AND PROTECT [Suspect]
     Active Substance: PETROLATUM
     Dosage: UNK

REACTIONS (2)
  - Product odour abnormal [Unknown]
  - Nausea [Unknown]
